FAERS Safety Report 8174306-7 (Version None)
Quarter: 2012Q1

REPORT INFORMATION
  Report Type: 
  Country: None (occurrence: None)
  Receive Date: 20120229
  Receipt Date: 20120215
  Transmission Date: 20120608
  Serious: Yes (Hospitalization)
  Sender: FDA-Public Use
  Company Number: FR-SANOFI-AVENTIS-2012SA009944

PATIENT
  Age: 84 Year
  Sex: Male

DRUGS (11)
  1. EXELON [Concomitant]
     Dosage: 9.5 MG/24 HOURS PATCH
  2. PLAVIX [Suspect]
     Route: 048
     Dates: end: 20111231
  3. TAMSULOSIN HCL [Concomitant]
     Route: 048
  4. ACETAMINOPHEN [Concomitant]
     Route: 048
  5. FINASTERIDE [Concomitant]
     Route: 048
  6. PERINDOPRIL ERBUMINE [Suspect]
     Route: 048
     Dates: end: 20111231
  7. MEMANTINE HYDROCHLORIDE [Concomitant]
     Route: 048
  8. RABEPRAZOLE SODIUM [Concomitant]
     Route: 048
  9. ROSUVASTATIN CALCIUM [Concomitant]
     Route: 048
  10. AZOPT [Concomitant]
     Route: 048
  11. SECTRAL [Concomitant]
     Route: 048

REACTIONS (2)
  - ANAEMIA MACROCYTIC [None]
  - THROMBOCYTOPENIA [None]
